FAERS Safety Report 5193039-2 (Version None)
Quarter: 2006Q4

REPORT INFORMATION
  Report Type: 
  Country: None (occurrence: None)
  Receive Date: 20061228
  Receipt Date: 20060307
  Transmission Date: 20070319
  Serious: No
  Sender: FDA-Public Use
  Company Number: US-GLAXOSMITHKLINE-A0596490A

PATIENT
  Sex: Male

DRUGS (3)
  1. AVODART [Suspect]
     Indication: BENIGN PROSTATIC HYPERPLASIA
     Dosage: 1CAP ALTERNATE DAYS
     Route: 048
     Dates: start: 20060225
  2. GLUCOSAMINE [Suspect]
     Route: 048
  3. VITAMIN [Concomitant]

REACTIONS (1)
  - STOMACH DISCOMFORT [None]
